FAERS Safety Report 4295861-3 (Version None)
Quarter: 2004Q1

REPORT INFORMATION
  Report Type: 
  Country: None (occurrence: None)
  Receive Date: 20040216
  Receipt Date: 20031121
  Transmission Date: 20041129
  Serious: No
  Sender: FDA-Public Use
  Company Number: US-GLAXOSMITHKLINE-A0440845A

PATIENT
  Age: 62 Year
  Sex: Female

DRUGS (4)
  1. LAMICTAL [Suspect]
     Indication: EPILEPSY
     Dosage: 150MG TWICE PER DAY
     Route: 048
  2. LIPITOR [Concomitant]
  3. METFORMIN HCL [Concomitant]
  4. AVANDIA [Concomitant]

REACTIONS (3)
  - BURNING SENSATION [None]
  - MUSCULOSKELETAL STIFFNESS [None]
  - RASH PAPULAR [None]
